FAERS Safety Report 4995984-7 (Version None)
Quarter: 2006Q2

REPORT INFORMATION
  Report Type: 
  Country: None (occurrence: None)
  Receive Date: 20060508
  Receipt Date: 20060119
  Transmission Date: 20061013
  Serious: Yes (Hospitalization)
  Sender: FDA-Public Use
  Company Number: US-MERCK-0601USA02592

PATIENT
  Age: 58 Year
  Sex: Female
  Weight: 83 kg

DRUGS (14)
  1. ZOCOR [Concomitant]
     Indication: BLOOD CHOLESTEROL INCREASED
     Route: 065
     Dates: start: 19991220, end: 20021124
  2. PREMARIN [Concomitant]
     Indication: HORMONE REPLACEMENT THERAPY
     Route: 065
     Dates: start: 19810801, end: 20030817
  3. LISINOPRIL [Concomitant]
     Indication: HYPERTENSION
     Route: 065
     Dates: start: 19980615, end: 20040612
  4. ZESTRIL [Concomitant]
     Indication: HYPERTENSION
     Route: 065
     Dates: start: 19990819, end: 20020905
  5. CIMETIDINE [Concomitant]
     Indication: ULCER
     Route: 065
  6. PROTONIX [Concomitant]
     Indication: ULCER
     Route: 065
  7. LEVOTHROID [Concomitant]
     Indication: THYROID DISORDER
     Route: 065
     Dates: start: 20020101
  8. TYLENOL (CAPLET) [Concomitant]
     Indication: ARTHRALGIA
     Route: 065
     Dates: start: 20020101
  9. VIOXX [Suspect]
     Indication: ARTHRALGIA
     Route: 048
     Dates: start: 20010416, end: 20021030
  10. VIOXX [Suspect]
     Indication: OSTEOARTHRITIS
     Route: 048
     Dates: start: 20010416, end: 20021030
  11. NORVASC [Concomitant]
     Indication: CHEST PAIN
     Route: 065
     Dates: start: 19980624, end: 20030615
  12. DEMADEX [Concomitant]
     Indication: OEDEMA PERIPHERAL
     Route: 065
     Dates: start: 20010112
  13. ATENOLOL [Concomitant]
     Indication: HYPERTENSION
     Route: 065
     Dates: start: 20010112
  14. ASPIRIN [Concomitant]
     Route: 065
     Dates: start: 19990819

REACTIONS (9)
  - ARTERIOSCLEROSIS [None]
  - ARTERIOSCLEROSIS CORONARY ARTERY [None]
  - CHEST PAIN [None]
  - CORONARY ARTERY DISEASE [None]
  - CYST [None]
  - DIABETES MELLITUS [None]
  - MYOCARDIAL INFARCTION [None]
  - OVARIAN CYST [None]
  - OVERDOSE [None]
